FAERS Safety Report 4398066-0 (Version None)
Quarter: 2004Q3

REPORT INFORMATION
  Report Type: 
  Country: None (occurrence: None)
  Receive Date: 20040713
  Receipt Date: 20040630
  Transmission Date: 20050211
  Serious: Yes (Hospitalization)
  Sender: FDA-Public Use
  Company Number: 2004043561

PATIENT
  Age: 40 Year
  Sex: Male

DRUGS (3)
  1. ZITHROMAX [Suspect]
     Indication: PHARYNGITIS
     Dosage: 500 MG (1 D), ORAL
     Route: 048
  2. PARACETAMOL (PARACETAMOL) [Concomitant]
  3. DICLOFENAC SODIUM [Concomitant]

REACTIONS (3)
  - ABDOMINAL PAIN [None]
  - DIARRHOEA [None]
  - PYREXIA [None]
